FAERS Safety Report 9913929 (Version 1)
Quarter: 2014Q1

REPORT INFORMATION
  Report Type: Spontaneous
  Country: ES (occurrence: ES)
  Receive Date: 20140220
  Receipt Date: 20140220
  Transmission Date: 20141002
  Serious: Yes (Life-Threatening, Hospitalization)
  Sender: FDA-Public Use
  Company Number: ES-SA-2014SA020250

PATIENT
  Age: 76 Year
  Sex: Male

DRUGS (6)
  1. CLEXANE [Suspect]
     Indication: THROMBOSIS PROPHYLAXIS
     Dosage: 40MG 6 TO 8 MARCH AFTER 60 MG / DAY
     Route: 058
     Dates: start: 20130306, end: 20130406
  2. SINTROM [Interacting]
     Indication: DEEP VEIN THROMBOSIS
     Dosage: SP
     Route: 048
     Dates: start: 20130308, end: 20130315
  3. ATENOLOL [Concomitant]
     Indication: VENTRICULAR TACHYCARDIA
     Dosage: 1-0-0
     Route: 048
     Dates: start: 2011
  4. ENALAPRIL [Concomitant]
     Indication: CARDIAC FAILURE CONGESTIVE
     Dosage: 1-0-0
     Route: 048
     Dates: start: 2011
  5. ALLOPURINOL [Concomitant]
     Indication: HYPERURICAEMIA
     Dosage: 1CP
     Route: 048
     Dates: start: 2006
  6. ORAL ANTIDIABETICS [Concomitant]
     Indication: TYPE 2 DIABETES MELLITUS
     Dosage: 1-0-1
     Route: 048
     Dates: start: 2011

REACTIONS (4)
  - Anaemia [Recovered/Resolved]
  - Drug interaction [Unknown]
  - Retroperitoneal haematoma [Recovered/Resolved]
  - Angina pectoris [Recovered/Resolved]
